FAERS Safety Report 13533236 (Version 1)
Quarter: 2017Q2

REPORT INFORMATION
  Report Type: Spontaneous
  Country: US (occurrence: US)
  Receive Date: 20170510
  Receipt Date: 20170510
  Transmission Date: 20170830
  Serious: Yes (Other)
  Sender: FDA-Public Use
  Company Number: US-IMPAX LABORATORIES, INC-2017-IPXL-01256

PATIENT
  Age: 34 Year
  Sex: Female

DRUGS (2)
  1. DILAUDID [Concomitant]
     Active Substance: HYDROMORPHONE HYDROCHLORIDE
     Indication: PAIN IN EXTREMITY
     Dosage: UNK
     Route: 065
  2. BACLOFEN. [Suspect]
     Active Substance: BACLOFEN
     Indication: PAIN IN EXTREMITY
     Dosage: 40 MG, UNK
     Route: 065

REACTIONS (3)
  - Toxicity to various agents [Recovering/Resolving]
  - Drug-disease interaction [Recovering/Resolving]
  - Encephalopathy [Recovering/Resolving]
